FAERS Safety Report 8876126 (Version 1)
Quarter: 2012Q4

REPORT INFORMATION
  Report Type: 
  Country: US (occurrence: US)
  Receive Date: 20121030
  Receipt Date: 20121030
  Transmission Date: 20130627
  Serious: Yes (Other)
  Sender: FDA-Public Use
  Company Number: US-PERRIGO-12US009217

PATIENT
  Age: 22 Year
  Sex: Female
  Weight: 63.49 kg

DRUGS (1)
  1. APAP PM CPLT 437 [Suspect]
     Indication: PRODUCT USED FOR UNKNOWN INDICATION
     Dosage: 26 tablets
     Route: 048
     Dates: start: 20121022, end: 20121022

REACTIONS (1)
  - Accidental overdose [Unknown]
